FAERS Safety Report 11830953 (Version 1)
Quarter: 2015Q4

REPORT INFORMATION
  Report Type: Spontaneous
  Country: GB (occurrence: GB)
  Receive Date: 20151214
  Receipt Date: 20151214
  Transmission Date: 20160305
  Serious: Yes (Other)
  Sender: FDA-Public Use
  Company Number: GB-AUROBINDO-AUR-APL-2015-11308

PATIENT
  Age: 69 Year
  Sex: Female
  Weight: 73.93 kg

DRUGS (1)
  1. TAMSULOSIN 400?G [Suspect]
     Active Substance: TAMSULOSIN
     Indication: NEPHROLITHIASIS
     Dosage: 400 ?G, UNK
     Route: 048
     Dates: start: 20151121

REACTIONS (7)
  - Swelling face [Recovering/Resolving]
  - Chest pain [Recovering/Resolving]
  - Palpitations [Recovering/Resolving]
  - Epistaxis [Recovering/Resolving]
  - Eye contusion [Recovering/Resolving]
  - Dyspnoea [Recovering/Resolving]
  - Chest discomfort [Recovering/Resolving]
